FAERS Safety Report 24704186 (Version 1)
Quarter: 2024Q4

REPORT INFORMATION
  Report Type: Spontaneous
  Country: US (occurrence: US)
  Receive Date: 20241206
  Receipt Date: 20241206
  Transmission Date: 20250115
  Serious: No
  Sender: ALEXION PHARMACEUTICALS
  Company Number: US-AstraZeneca-CH-00761274A

PATIENT

DRUGS (1)
  1. BRILINTA [Suspect]
     Active Substance: TICAGRELOR

REACTIONS (6)
  - Cough [Unknown]
  - Staphylococcal infection [Unknown]
  - Surgery [Unknown]
  - Antibiotic therapy [Unknown]
  - Cough [Unknown]
  - Hypersensitivity [Unknown]
